FAERS Safety Report 23090361 (Version 1)
Quarter: 2023Q4

REPORT INFORMATION
  Report Type: Report from Study
  Country: US (occurrence: None)
  Receive Date: 20231020
  Receipt Date: 20231020
  Transmission Date: 20240109
  Serious: Yes (Hospitalization)
  Sender: FDA-Public Use
  Company Number: 2023A234404

PATIENT
  Age: 25029 Day
  Sex: Female

DRUGS (1)
  1. CALQUENCE [Suspect]
     Active Substance: ACALABRUTINIB
     Indication: Chronic lymphocytic leukaemia
     Route: 048
     Dates: start: 202305

REACTIONS (13)
  - Gastrointestinal disorder [Unknown]
  - Oesophageal carcinoma [Unknown]
  - Nausea [Unknown]
  - Headache [Unknown]
  - Platelet count decreased [Unknown]
  - Dizziness [Unknown]
  - Abdominal discomfort [Unknown]
  - Splenomegaly [Unknown]
  - Blood pressure abnormal [Unknown]
  - Fatigue [Unknown]
  - Back pain [Unknown]
  - Product dose omission issue [Unknown]
  - Inappropriate schedule of product administration [Unknown]

NARRATIVE: CASE EVENT DATE: 20230524
